FAERS Safety Report 10360698 (Version 2)
Quarter: 2014Q4

REPORT INFORMATION
  Report Type: Spontaneous
  Country: JP (occurrence: JP)
  Receive Date: 20140804
  Receipt Date: 20141106
  Transmission Date: 20150528
  Serious: Yes (Other)
  Sender: FDA-Public Use
  Company Number: JP-009507513-1407JPN014176

PATIENT
  Age: 69 Year
  Sex: Female

DRUGS (13)
  1. EMEND [Suspect]
     Active Substance: APREPITANT
     Indication: PROPHYLAXIS OF NAUSEA AND VOMITING
     Dosage: 125 MG, DAILY
     Route: 048
     Dates: start: 20140714, end: 20140714
  2. DOXORUBICIN HYDROCHLORIDE. [Suspect]
     Active Substance: DOXORUBICIN HYDROCHLORIDE
     Indication: HODGKIN^S DISEASE
     Dosage: UNK
     Route: 042
  3. EXAL [Suspect]
     Active Substance: VINBLASTINE SULFATE
     Indication: HODGKIN^S DISEASE
     Dosage: UNK
     Route: 042
  4. DACARBAZINE. [Suspect]
     Active Substance: DACARBAZINE
     Indication: HODGKIN^S DISEASE
     Dosage: UNK
     Route: 042
  5. EMEND [Suspect]
     Active Substance: APREPITANT
     Indication: PROPHYLAXIS OF NAUSEA AND VOMITING
     Dosage: 80 MG, QD
     Route: 048
     Dates: start: 20140715, end: 20140716
  6. DOXORUBICIN HYDROCHLORIDE. [Suspect]
     Active Substance: DOXORUBICIN HYDROCHLORIDE
     Dosage: UNK
     Route: 042
     Dates: start: 20140714, end: 20140714
  7. SOLU-CORTEF [Concomitant]
     Active Substance: HYDROCORTISONE SODIUM SUCCINATE
     Dosage: UNK
     Dates: start: 20140714, end: 20140714
  8. BLEO [Suspect]
     Active Substance: BLEOMYCIN HYDROCHLORIDE
     Dosage: UNK
     Route: 042
     Dates: start: 20140714, end: 20140714
  9. EXAL [Suspect]
     Active Substance: VINBLASTINE SULFATE
     Dosage: UNK
     Route: 042
     Dates: start: 20140714, end: 20140714
  10. ALOXI [Concomitant]
     Active Substance: PALONOSETRON HYDROCHLORIDE
     Dosage: UNK
     Dates: start: 20140714, end: 20140714
  11. BLEO [Suspect]
     Active Substance: BLEOMYCIN HYDROCHLORIDE
     Indication: HODGKIN^S DISEASE
     Dosage: UNK
     Route: 042
  12. PREDONINE [Concomitant]
     Active Substance: PREDNISOLONE\PREDNISOLONE ACETATE\PREDNISOLONE SODIUM SUCCINATE
     Dosage: UNK
     Dates: start: 20140714, end: 20140714
  13. DACARBAZINE. [Suspect]
     Active Substance: DACARBAZINE
     Dosage: UNK
     Route: 042
     Dates: start: 20140714, end: 20140714

REACTIONS (1)
  - Agranulocytosis [Recovered/Resolved]

NARRATIVE: CASE EVENT DATE: 20140722
